FAERS Safety Report 10208487 (Version 1)
Quarter: 2014Q2

REPORT INFORMATION
  Report Type: Spontaneous
  Country: SE (occurrence: SE)
  Receive Date: 20140530
  Receipt Date: 20140530
  Transmission Date: 20141212
  Serious: Yes (Disabling)
  Sender: FDA-Public Use
  Company Number: PHHY2014SE064265

PATIENT
  Age: 39 Year
  Sex: Male

DRUGS (2)
  1. RITALIN [Suspect]
     Indication: ATTENTION DEFICIT/HYPERACTIVITY DISORDER
     Dosage: UNK UKN, UNK
     Dates: end: 20100607
  2. RITALIN [Suspect]
     Indication: OFF LABEL USE

REACTIONS (2)
  - Syncope [Unknown]
  - Tardive dyskinesia [Unknown]
